FAERS Safety Report 7189323-3 (Version None)
Quarter: 2010Q4

REPORT INFORMATION
  Report Type: 
  Country: None (occurrence: None)
  Receive Date: 20101222
  Receipt Date: 20100813
  Transmission Date: 20110411
  Serious: No
  Sender: FDA-Public Use
  Company Number: US-AMGEN-TCS422673

PATIENT

DRUGS (14)
  1. ENBREL [Suspect]
     Indication: PSORIATIC ARTHROPATHY
     Dosage: 50 MG, QWK
     Route: 058
     Dates: start: 20100601
  2. METHOTREXATE [Concomitant]
     Dosage: 2.5 MG, QWK
     Route: 048
  3. ZOLPIDEM TARTRATE [Concomitant]
     Indication: PRODUCT USED FOR UNKNOWN INDICATION
     Dosage: 5 MG, PRN
  4. TRAZODONE HCL [Concomitant]
     Dosage: 50 MG, UNK
  5. FOLIC ACID [Concomitant]
     Dosage: 1 MG, QD
  6. LISINOPRIL AND HYDROCHLOROTHIAZIDE [Concomitant]
     Dosage: UNK UNK, QD
  7. CYCLOBENZAPRINE HCL [Concomitant]
     Indication: PAIN
     Dosage: 10 MG, PRN
  8. CYCLOBENZAPRINE HCL [Concomitant]
     Indication: PRODUCT USED FOR UNKNOWN INDICATION
  9. FLUTICASONE PROPIONATE [Concomitant]
     Dosage: UNK UNK, UNK
     Route: 045
  10. SERTRALINE HYDROCHLORIDE [Concomitant]
     Dosage: 100 MG, BID
  11. LEVOTHYROXINE SODIUM [Concomitant]
     Dosage: 125 A?G, QD
  12. ATORVASTATIN CALCIUM [Concomitant]
     Dosage: 20 MG, QD
  13. DEXTROPROPOXYPHENE NAPSILATE W/ ACETAMINOPHEN [Concomitant]
     Dosage: UNK UNK, PRN
  14. CELECOXIB [Concomitant]
     Indication: OSTEOARTHRITIS

REACTIONS (4)
  - INJECTION SITE ERYTHEMA [None]
  - INJECTION SITE RASH [None]
  - INJECTION SITE RECALL REACTION [None]
  - INJECTION SITE SWELLING [None]
